FAERS Safety Report 7914864-8 (Version None)
Quarter: 2011Q4

REPORT INFORMATION
  Report Type: 
  Country: None (occurrence: None)
  Receive Date: 20111115
  Receipt Date: 20111107
  Transmission Date: 20120403
  Serious: Yes (Hospitalization)
  Sender: FDA-Public Use
  Company Number: US-SANOFI-AVENTIS-2011SA073796

PATIENT
  Sex: Female

DRUGS (3)
  1. ANTIHYPERTENSIVES [Suspect]
     Route: 065
  2. LANTUS [Suspect]
     Dosage: DOSE:65 UNIT(S)
     Route: 058
  3. OPTICLICK [Suspect]

REACTIONS (2)
  - HYPOTENSION [None]
  - SYNCOPE [None]
